FAERS Safety Report 12309153 (Version 1)
Quarter: 2016Q2

REPORT INFORMATION
  Report Type: Spontaneous
  Country: NO (occurrence: NO)
  Receive Date: 20160427
  Receipt Date: 20160427
  Transmission Date: 20160815
  Serious: Yes (Hospitalization)
  Sender: FDA-Public Use
  Company Number: NO-AXELLIA-000918

PATIENT
  Age: 51 Year
  Sex: Female

DRUGS (2)
  1. VANCOMYCIN [Suspect]
     Active Substance: VANCOMYCIN
     Indication: POSTOPERATIVE WOUND INFECTION
     Route: 042
     Dates: start: 20151021, end: 20151026
  2. EKVACILLIN [Concomitant]
     Active Substance: CLOXACILLIN SODIUM
     Indication: POSTOPERATIVE WOUND INFECTION
     Dosage: CHANGED FROM IV TO ORAL AFTER 6 DAYS OF TREATMENT
     Route: 042
     Dates: start: 20151021, end: 20151102

REACTIONS (5)
  - Nausea [Recovering/Resolving]
  - Drug level above therapeutic [Recovering/Resolving]
  - Malaise [Recovering/Resolving]
  - Acute kidney injury [Recovering/Resolving]
  - Pain [Recovering/Resolving]

NARRATIVE: CASE EVENT DATE: 20151024
